FAERS Safety Report 9067773 (Version 1)
Quarter: 2013Q1

REPORT INFORMATION
  Report Type: Other
  Country: DE (occurrence: DE)
  Receive Date: 20130128
  Receipt Date: 20130128
  Transmission Date: 20140127
  Serious: Yes (Other)
  Sender: FDA-Public Use
  Company Number: DE-NICOBRDEVP-2013-00616

PATIENT
  Age: 30 Year
  Sex: Female
  Weight: 60 kg

DRUGS (1)
  1. CITALOPRAM HYDROBROMIDE (UNKNOWN) [Suspect]
     Indication: DEPRESSION
     Dosage: ^20^
     Route: 048
     Dates: start: 200202, end: 201211

REACTIONS (7)
  - Gastrointestinal pain [Recovered/Resolved]
  - Withdrawal syndrome [Unknown]
  - Headache [Unknown]
  - Panic attack [Unknown]
  - Nervousness [Unknown]
  - Tachycardia [Unknown]
  - Dizziness [Unknown]
